FAERS Safety Report 13614038 (Version 3)
Quarter: 2017Q3

REPORT INFORMATION
  Report Type: Spontaneous
  Country: PT (occurrence: PT)
  Receive Date: 20170606
  Receipt Date: 20170711
  Transmission Date: 20171127
  Serious: Yes (Hospitalization, Other)
  Sender: FDA-Public Use
  Company Number: PT-ASTRAZENECA-2017SE57850

PATIENT
  Age: 69 Year
  Sex: Female
  Weight: 56 kg

DRUGS (8)
  1. PANTOPRAZOLE [Concomitant]
     Active Substance: PANTOPRAZOLE
  2. TAGRISSO [Suspect]
     Active Substance: OSIMERTINIB
     Indication: LUNG ADENOCARCINOMA
     Route: 048
     Dates: start: 20160825, end: 20170530
  3. DABIGATRAN [Concomitant]
     Active Substance: DABIGATRAN
  4. BUPRENORPHINE. [Concomitant]
     Active Substance: BUPRENORPHINE
     Route: 062
  5. MEGESTROL [Concomitant]
     Active Substance: MEGESTROL
  6. IRBESARTAN HYDROCHLOROTHIAZIDE [Concomitant]
     Active Substance: HYDROCHLOROTHIAZIDE\IRBESARTAN
  7. TAGRISSO [Suspect]
     Active Substance: OSIMERTINIB
     Indication: EGFR GENE MUTATION
     Route: 048
     Dates: start: 20160825, end: 20170530
  8. NEBIVOLOL. [Concomitant]
     Active Substance: NEBIVOLOL

REACTIONS (4)
  - Malignant neoplasm progression [Unknown]
  - Pericardial effusion [Not Recovered/Not Resolved]
  - Pericarditis [Not Recovered/Not Resolved]
  - Atrial fibrillation [Unknown]

NARRATIVE: CASE EVENT DATE: 20160916
